FAERS Safety Report 13340352 (Version 2)
Quarter: 2018Q3

REPORT INFORMATION
  Report Type: Report from Study
  Country: US (occurrence: US)
  Receive Date: 20170316
  Receipt Date: 20180807
  Transmission Date: 20181010
  Serious: No
  Sender: FDA-Public Use
  Company Number: US-LEO PHARMA-300238

PATIENT
  Age: 66 Year
  Sex: Female

DRUGS (2)
  1. PICATO [Suspect]
     Active Substance: INGENOL MEBUTATE
     Indication: ACTINIC KERATOSIS
     Dosage: APPLY DAILY FOR 3 DAYS
     Route: 061
     Dates: start: 20170305, end: 20170307
  2. PICATO [Suspect]
     Active Substance: INGENOL MEBUTATE

REACTIONS (7)
  - Loss of personal independence in daily activities [Unknown]
  - Application site vesicles [Recovered/Resolved]
  - Application site erythema [Not Recovered/Not Resolved]
  - Inappropriate schedule of drug administration [Unknown]
  - Eyelid oedema [Recovered/Resolved]
  - Eye swelling [Recovered/Resolved]
  - Application site pain [Recovered/Resolved]

NARRATIVE: CASE EVENT DATE: 20170307
